FAERS Safety Report 25427401 (Version 2)
Quarter: 2025Q2

REPORT INFORMATION
  Report Type: Report from Study
  Country: CA (occurrence: CA)
  Receive Date: 20250612
  Receipt Date: 20250624
  Transmission Date: 20250717
  Serious: Yes (Other)
  Sender: ABBVIE
  Company Number: CA-ABBVIE-6317477

PATIENT
  Age: 61 Year
  Sex: Female

DRUGS (2)
  1. RINVOQ [Suspect]
     Active Substance: UPADACITINIB
     Indication: Dermatitis atopic
     Dosage: FORM STRENGTH 15MG
     Route: 048
     Dates: end: 20250528
  2. RINVOQ [Suspect]
     Active Substance: UPADACITINIB
     Indication: Dermatitis atopic
     Route: 048
     Dates: start: 202506, end: 202506

REACTIONS (8)
  - Breast capsulectomy [Unknown]
  - Fungal infection [Unknown]
  - Urinary tract infection [Unknown]
  - Pruritus [Unknown]
  - Skin infection [Unknown]
  - Immunodeficiency [Unknown]
  - Stress [Unknown]
  - Pain of skin [Unknown]

NARRATIVE: CASE EVENT DATE: 20250101
